FAERS Safety Report 7668680-5 (Version None)
Quarter: 2011Q3

REPORT INFORMATION
  Report Type: 
  Country: None (occurrence: None)
  Receive Date: 20110808
  Receipt Date: 20110728
  Transmission Date: 20111222
  Serious: Yes (Death, Other)
  Sender: FDA-Public Use
  Company Number: PT-GENZYME-THYM-1002663

PATIENT
  Age: 46 Year
  Sex: Female

DRUGS (6)
  1. THYMOGLOBULIN [Suspect]
     Indication: PROPHYLAXIS AGAINST TRANSPLANT REJECTION
     Route: 042
  2. PREDNISONE [Concomitant]
     Indication: IMMUNOSUPPRESSION
     Route: 065
  3. THYMOGLOBULIN [Suspect]
  4. CORTICOSTEROIDS [Concomitant]
     Indication: PRODUCT USED FOR UNKNOWN INDICATION
     Route: 065
  5. CYCLOSPORINE [Concomitant]
     Indication: IMMUNOSUPPRESSION
     Route: 065
  6. MYCOPHENOLIC ACID [Concomitant]
     Indication: PRODUCT USED FOR UNKNOWN INDICATION
     Dosage: UNK
     Route: 065

REACTIONS (4)
  - GRAFT LOSS [None]
  - SEPTIC SHOCK [None]
  - LIVER TRANSPLANT REJECTION [None]
  - FUNGAL INFECTION [None]
